FAERS Safety Report 15974511 (Version 1)
Quarter: 2019Q1

REPORT INFORMATION
  Report Type: Spontaneous
  Country: IN (occurrence: IN)
  Receive Date: 20190218
  Receipt Date: 20190218
  Transmission Date: 20190418
  Serious: Yes (Other)
  Sender: FDA-Public Use
  Company Number: IN-LUPIN PHARMACEUTICALS INC.-2019-00794

PATIENT
  Age: 27 Year
  Sex: Female

DRUGS (6)
  1. PANTOPRAZOLE [Concomitant]
     Active Substance: PANTOPRAZOLE
     Indication: PRODUCT USED FOR UNKNOWN INDICATION
     Dosage: 40 MILLIGRAM
     Route: 065
  2. TRAMADOL. [Concomitant]
     Active Substance: TRAMADOL
     Indication: PRODUCT USED FOR UNKNOWN INDICATION
     Dosage: 50 MILLIGRAM
     Route: 065
  3. CEFTRIAXONE INJECTION [Suspect]
     Active Substance: CEFTRIAXONE SODIUM
     Indication: INFECTION PROPHYLAXIS
     Dosage: 0.1 MILLILITER, PRE-OPERATIVE
     Route: 023
  4. OXYTOCIN. [Concomitant]
     Active Substance: OXYTOCIN
     Indication: PRODUCT USED FOR UNKNOWN INDICATION
     Dosage: 10 UNIT
     Route: 042
  5. PROMETHAZINE [Concomitant]
     Active Substance: PROMETHAZINE\PROMETHAZINE HYDROCHLORIDE
     Indication: PRODUCT USED FOR UNKNOWN INDICATION
     Dosage: 28 MILLIGRAM
     Route: 065
  6. CEFTRIAXONE INJECTION [Suspect]
     Active Substance: CEFTRIAXONE SODIUM
     Dosage: 2 GRAM (POSTOPERATIVE)
     Route: 042

REACTIONS (4)
  - Periorbital oedema [Unknown]
  - Conjunctival oedema [Unknown]
  - Dyspnoea [Unknown]
  - Erythema of eyelid [Unknown]
